FAERS Safety Report 18947527 (Version 1)
Quarter: 2021Q1

REPORT INFORMATION
  Report Type: Spontaneous
  Country: FR (occurrence: FR)
  Receive Date: 20210226
  Receipt Date: 20210226
  Transmission Date: 20210420
  Serious: Yes (Life-Threatening)
  Sender: FDA-Public Use
  Company Number: FR-SEPTODONT-2020005932

PATIENT
  Age: 38 Year
  Sex: Female

DRUGS (1)
  1. SEPTANEST [Suspect]
     Active Substance: ARTICAINE HYDROCHLORIDE\EPINEPHRINE BITARTRATE
     Indication: DENTAL LOCAL ANAESTHESIA
     Dosage: 30G ? 0,30X21MM ? HEATHLY INJECTION SITE ? SEVERAL INJECTION
     Route: 004
     Dates: start: 20201026, end: 20201026

REACTIONS (3)
  - Swelling [Recovered/Resolved]
  - Facial paralysis [Recovered/Resolved]
  - Dyspnoea [Recovered/Resolved]

NARRATIVE: CASE EVENT DATE: 20201026
